FAERS Safety Report 6616024-X (Version None)
Quarter: 2010Q1

REPORT INFORMATION
  Report Type: 
  Country: None (occurrence: None)
  Receive Date: 20100305
  Receipt Date: 20100222
  Transmission Date: 20100710
  Serious: Yes (Other)
  Sender: FDA-Public Use
  Company Number: B0635639A

PATIENT
  Age: 58 Year
  Sex: Male

DRUGS (2)
  1. ALKERAN [Suspect]
     Indication: MYELODYSPLASTIC SYNDROME
     Dosage: 80MG PER DAY
     Route: 042
  2. FLUDARA [Concomitant]
     Route: 065

REACTIONS (3)
  - BLOOD BILIRUBIN UNCONJUGATED INCREASED [None]
  - HAPTOGLOBIN DECREASED [None]
  - HEPATITIS A ANTIBODY POSITIVE [None]
